FAERS Safety Report 5642649-4 (Version None)
Quarter: 2008Q1

REPORT INFORMATION
  Report Type: 
  Country: None (occurrence: None)
  Receive Date: 20080228
  Receipt Date: 20080228
  Transmission Date: 20080703
  Serious: Yes (Other)
  Sender: FDA-Public Use
  Company Number: None

PATIENT
  Age: 72 Year
  Sex: Female

DRUGS (3)
  1. HEPARIN [Suspect]
     Indication: ANGIOPLASTY
     Dosage: 2,000 UNITS ONCE IV
     Route: 042
     Dates: start: 20080214, end: 20080214
  2. HEPARIN [Suspect]
     Indication: ARTERIOVENOUS FISTULA OPERATION
     Dosage: 2,000 UNITS ONCE IV
     Route: 042
     Dates: start: 20080214, end: 20080214
  3. HEPARIN [Suspect]
     Indication: ARTERIOVENOUS GRAFT
     Dosage: 2,000 UNITS ONCE IV
     Route: 042
     Dates: start: 20080214, end: 20080214

REACTIONS (1)
  - BLOOD PRESSURE DECREASED [None]
